FAERS Safety Report 6575162-0 (Version None)
Quarter: 2010Q1

REPORT INFORMATION
  Report Type: 
  Country: None (occurrence: None)
  Receive Date: 20100209
  Receipt Date: 20100127
  Transmission Date: 20100710
  Serious: Yes (Other)
  Sender: FDA-Public Use
  Company Number: JP-BAYER-201010480BYL

PATIENT
  Age: 62 Year
  Sex: Male
  Weight: 54 kg

DRUGS (14)
  1. NEXAVAR [Suspect]
     Indication: RENAL CELL CARCINOMA
     Dosage: TOTAL DAILY DOSE: 800 MG  UNIT DOSE: 200 MG
     Route: 048
     Dates: start: 20080610, end: 20080829
  2. NEXAVAR [Suspect]
     Dosage: UNIT DOSE: 200 MG
     Route: 048
     Dates: start: 20080830, end: 20090205
  3. NEXAVAR [Suspect]
     Dosage: UNIT DOSE: 200 MG
     Route: 048
     Dates: start: 20090327, end: 20090508
  4. NEXAVAR [Suspect]
     Dosage: UNIT DOSE: 200 MG
     Route: 048
     Dates: start: 20090508, end: 20090701
  5. NEXAVAR [Suspect]
     Dosage: UNIT DOSE: 200 MG
     Route: 048
     Dates: start: 20090206, end: 20090327
  6. NEXAVAR [Suspect]
     Dosage: UNIT DOSE: 200 MG
     Route: 048
     Dates: start: 20090703
  7. MOBIC [Concomitant]
     Dosage: UNIT DOSE: 10 MG
     Route: 048
  8. FERROMIA [Concomitant]
     Dosage: UNIT DOSE: 50 MG
     Route: 048
  9. BIOFERMIN [Concomitant]
     Route: 048
     Dates: start: 20080623
  10. TRANSAMIN [Concomitant]
     Dosage: UNIT DOSE: 5 %
     Route: 048
     Dates: start: 20080625
  11. ALLOID G [Concomitant]
     Dosage: UNIT DOSE: 5 %
     Route: 048
     Dates: start: 20080628
  12. GASTER D [Concomitant]
     Dosage: UNIT DOSE: 10 MG
     Route: 048
     Dates: start: 20080702
  13. MUCOSTA [Concomitant]
     Dosage: UNIT DOSE: 100 MG
     Route: 048
     Dates: start: 20080702
  14. KOLANTYL [Concomitant]
     Route: 048

REACTIONS (5)
  - ALOPECIA [None]
  - DIARRHOEA [None]
  - HEPATIC FUNCTION ABNORMAL [None]
  - MALAISE [None]
  - PALMAR-PLANTAR ERYTHRODYSAESTHESIA SYNDROME [None]
